FAERS Safety Report 9980819 (Version 1)
Quarter: 2014Q1

REPORT INFORMATION
  Report Type: Spontaneous
  Country: US (occurrence: None)
  Receive Date: 20140306
  Receipt Date: 20140306
  Transmission Date: 20141002
  Serious: Yes (Death)
  Sender: FDA-Public Use
  Company Number: None

PATIENT
  Age: 44 Year
  Sex: Female
  Weight: 79.38 kg

DRUGS (4)
  1. CHANTIX [Suspect]
     Indication: SMOKING CESSATION THERAPY
     Dosage: 0.5 MG + 1.0 MG 1 QD X3D; 1 BID X78
     Dates: start: 20130828, end: 20131119
  2. PLACEBO PATCH [Concomitant]
  3. METFORMIN [Concomitant]
  4. ALBUTEROL [Concomitant]

REACTIONS (2)
  - Pulmonary embolism [None]
  - Breast abscess [None]
